FAERS Safety Report 13043159 (Version 1)
Quarter: 2016Q4

REPORT INFORMATION
  Report Type: Spontaneous
  Country: BR (occurrence: BR)
  Receive Date: 20161219
  Receipt Date: 20161219
  Transmission Date: 20170207
  Serious: Yes (Other)
  Sender: FDA-Public Use
  Company Number: PHHY2016BR170757

PATIENT
  Sex: Female

DRUGS (1)
  1. VERAPAMIL SANDOZ [Suspect]
     Active Substance: VERAPAMIL HYDROCHLORIDE
     Indication: HYPERTENSION
     Dosage: 180 MG, QD
     Route: 048

REACTIONS (6)
  - Feeling abnormal [Unknown]
  - Dry eye [Unknown]
  - Dizziness [Unknown]
  - Dry mouth [Unknown]
  - Asthenia [Unknown]
  - Systemic lupus erythematosus [Unknown]
